FAERS Safety Report 8846856 (Version 1)
Quarter: 2012Q4

REPORT INFORMATION
  Report Type: Spontaneous
  Country: US (occurrence: None)
  Receive Date: 20121017
  Receipt Date: 20121017
  Transmission Date: 20130627
  Serious: Yes (Hospitalization)
  Sender: FDA-Public Use
  Company Number: None

PATIENT
  Age: 47 Year
  Sex: Male
  Weight: 98.6 kg

DRUGS (1)
  1. PROLASTIN-C [Suspect]
     Route: 042
     Dates: start: 20121011

REACTIONS (3)
  - Abdominal pain [None]
  - Back pain [None]
  - Dizziness [None]
